FAERS Safety Report 5962170-3 (Version None)
Quarter: 2008Q4

REPORT INFORMATION
  Report Type: 
  Country: None (occurrence: None)
  Receive Date: 20081121
  Receipt Date: 20081118
  Transmission Date: 20090506
  Serious: Yes (Other)
  Sender: FDA-Public Use
  Company Number: US-ABBOTT-08P-163-0488892-00

PATIENT
  Sex: Female
  Weight: 61.29 kg

DRUGS (11)
  1. HUMIRA [Suspect]
     Indication: CROHN'S DISEASE
  2. VITAMIN TAB [Concomitant]
     Indication: DRUG USE FOR UNKNOWN INDICATION
     Route: 048
     Dates: start: 20080807
  3. ASCORBIC ACID [Concomitant]
     Indication: DRUG USE FOR UNKNOWN INDICATION
     Route: 048
     Dates: end: 20080820
  4. FISH OIL [Concomitant]
     Indication: DRUG USE FOR UNKNOWN INDICATION
     Route: 048
  5. VIGRAN [Concomitant]
     Indication: DRUG USE FOR UNKNOWN INDICATION
     Route: 048
     Dates: end: 20080806
  6. PREDNISONE TAB [Concomitant]
     Indication: CROHN'S DISEASE
     Route: 048
     Dates: end: 20080731
  7. PREDNISONE TAB [Concomitant]
     Route: 048
     Dates: start: 20080801, end: 20080815
  8. PREDNISONE TAB [Concomitant]
     Route: 048
     Dates: start: 20080816, end: 20080915
  9. MESALAMINE [Concomitant]
     Indication: CROHN'S DISEASE
     Route: 048
  10. DOCOSAHEXANOIC ACID [Concomitant]
     Indication: DRUG USE FOR UNKNOWN INDICATION
     Route: 048
     Dates: start: 20081015
  11. PROMETHAZINE [Concomitant]
     Indication: VOMITING IN PREGNANCY
     Dosage: 1 PILL 3.5 X/WK
     Route: 048
     Dates: start: 20081001

REACTIONS (4)
  - ABORTION SPONTANEOUS [None]
  - FUNGAL INFECTION [None]
  - HEADACHE [None]
  - UTERINE HYPERTONUS [None]
